FAERS Safety Report 8165923 (Version 3)
Quarter: 2014Q1

REPORT INFORMATION
  Report Type: Report from Study
  Country: US (occurrence: US)
  Receive Date: 20111003
  Receipt Date: 20140120
  Transmission Date: 20141002
  Serious: No
  Sender: FDA-Public Use
  Company Number: US-ELI_LILLY_AND_COMPANY-US201109004864

PATIENT
  Sex: Female

DRUGS (11)
  1. TERIPARATIDE [Suspect]
     Indication: OSTEOPOROSIS
     Dosage: 20 UG, QD
     Route: 065
     Dates: start: 201105
  2. TERIPARATIDE [Suspect]
     Dosage: 20 UG, QD
     Route: 065
     Dates: end: 20131105
  3. CYMBALTA [Suspect]
     Indication: DEPRESSION
     Dosage: 60 MG, QD
     Route: 065
     Dates: start: 201101
  4. RECLAST [Concomitant]
  5. ADDERALL [Concomitant]
  6. LAMICTAL [Concomitant]
  7. DESMOPRESSIN ACETATE [Concomitant]
  8. VALIUM [Concomitant]
  9. ACTEMRA [Concomitant]
  10. SIMVASTATIN [Concomitant]
  11. VESICARE [Concomitant]

REACTIONS (6)
  - Intentional drug misuse [Recovered/Resolved]
  - Memory impairment [Unknown]
  - Thinking abnormal [Unknown]
  - Spinal fracture [Unknown]
  - Vomiting [Recovering/Resolving]
  - Nausea [Not Recovered/Not Resolved]
